FAERS Safety Report 7471897-6 (Version None)
Quarter: 2011Q2

REPORT INFORMATION
  Report Type: 
  Country: None (occurrence: None)
  Receive Date: 20110511
  Receipt Date: 20100628
  Transmission Date: 20111010
  Serious: No
  Sender: FDA-Public Use
  Company Number: A0868856A

PATIENT
  Sex: Female

DRUGS (1)
  1. TYKERB [Suspect]
     Dosage: 1250MG PER DAY
     Dates: start: 20100616

REACTIONS (5)
  - CHAPPED LIPS [None]
  - DRY SKIN [None]
  - SKIN EXFOLIATION [None]
  - STOMATITIS [None]
  - PAIN IN EXTREMITY [None]
